FAERS Safety Report 9050429 (Version 3)
Quarter: 2017Q3

REPORT INFORMATION
  Report Type: Spontaneous
  Country: US (occurrence: US)
  Receive Date: 20130205
  Receipt Date: 20170721
  Transmission Date: 20171128
  Serious: No
  Sender: FDA-Public Use
  Company Number: US-PFIZER INC-2013042537

PATIENT
  Age: 75 Year
  Sex: Female

DRUGS (1)
  1. XELJANZ [Suspect]
     Active Substance: TOFACITINIB CITRATE
     Indication: RHEUMATOID ARTHRITIS
     Dosage: 5 MG, 2X/DAY; (1 TABLET EVERY MORNING AND 1 TABLET EVERY NIGHT)
     Route: 048
     Dates: start: 201301

REACTIONS (4)
  - Dyspepsia [Unknown]
  - Neuralgia [Not Recovered/Not Resolved]
  - Herpes zoster [Unknown]
  - Middle insomnia [Unknown]
